FAERS Safety Report 13424659 (Version 4)
Quarter: 2017Q4

REPORT INFORMATION
  Report Type: Spontaneous
  Country: US (occurrence: US)
  Receive Date: 20170410
  Receipt Date: 20171204
  Transmission Date: 20180320
  Serious: Yes (Hospitalization, Other)
  Sender: FDA-Public Use
  Company Number: US-TEVA-758703USA

PATIENT
  Sex: Female

DRUGS (13)
  1. COPAXONE [Suspect]
     Active Substance: GLATIRAMER ACETATE
     Indication: MULTIPLE SCLEROSIS
     Dosage: LIQUID
     Route: 058
     Dates: start: 20170106
  2. VESICARE [Concomitant]
     Active Substance: SOLIFENACIN SUCCINATE
  3. VITAMIN C [Concomitant]
     Active Substance: ASCORBIC ACID
  4. ROSUVASTATIN. [Concomitant]
     Active Substance: ROSUVASTATIN
  5. CYMBALTA [Concomitant]
     Active Substance: DULOXETINE HYDROCHLORIDE
  6. ERIVEDGE [Suspect]
     Active Substance: VISMODEGIB
     Indication: NEOPLASM MALIGNANT
     Dosage: 150 MILLIGRAM DAILY;
     Route: 048
     Dates: start: 20160825
  7. PRAVASTATIN. [Concomitant]
     Active Substance: PRAVASTATIN
  8. TIZANIDINE. [Concomitant]
     Active Substance: TIZANIDINE
  9. MELOXICAM. [Concomitant]
     Active Substance: MELOXICAM
  10. VITAMIN D3 [Concomitant]
     Active Substance: CHOLECALCIFEROL
  11. AMPYRA [Concomitant]
     Active Substance: DALFAMPRIDINE
  12. COQ10 [Concomitant]
     Active Substance: UBIDECARENONE
  13. KLOR-CON [Concomitant]
     Active Substance: POTASSIUM CHLORIDE

REACTIONS (11)
  - Decreased appetite [Not Recovered/Not Resolved]
  - Abdominal distension [Not Recovered/Not Resolved]
  - Fatigue [Unknown]
  - Influenza [Not Recovered/Not Resolved]
  - Myalgia [Unknown]
  - Asthenia [Not Recovered/Not Resolved]
  - Blood count abnormal [Unknown]
  - Muscle spasms [Not Recovered/Not Resolved]
  - Arthralgia [Unknown]
  - Staphylococcal infection [Not Recovered/Not Resolved]
  - Balance disorder [Not Recovered/Not Resolved]
